FAERS Safety Report 4369155-1 (Version None)
Quarter: 2004Q2

REPORT INFORMATION
  Report Type: 
  Country: None (occurrence: None)
  Receive Date: 20040527
  Receipt Date: 20040514
  Transmission Date: 20050107
  Serious: Yes (Hospitalization, Other)
  Sender: FDA-Public Use
  Company Number: 2004022130

PATIENT
  Age: 74 Year
  Sex: Male

DRUGS (1)
  1. GEODON [Suspect]
     Indication: DEMENTIA
     Dosage: 180 MG (60 MG, 3 IN 1D);  SEVERAL DAYS

REACTIONS (1)
  - NEUROLEPTIC MALIGNANT SYNDROME [None]
